FAERS Safety Report 16833280 (Version 1)
Quarter: 2019Q4

REPORT INFORMATION
  Report Type: Spontaneous
  Country: US (occurrence: US)
  Receive Date: 20190920
  Receipt Date: 20190920
  Transmission Date: 20200122
  Serious: Yes (Hospitalization)
  Sender: FDA-Public Use
  Company Number: None

PATIENT
  Age: 61 Year
  Sex: Male

DRUGS (17)
  1. MYCOPHENOLATE [Suspect]
     Active Substance: MYCOPHENOLIC ACID
     Indication: TRANSPLANT
     Route: 048
     Dates: start: 20140214
  2. ELIQUIS [Concomitant]
     Active Substance: APIXABAN
     Dates: start: 20180405
  3. TERBUTALINE [Concomitant]
     Active Substance: TERBUTALINE
     Dates: start: 20190912
  4. AMIODARONE [Concomitant]
     Active Substance: AMIODARONE
     Dates: start: 20180601
  5. CIALIS 29G [Concomitant]
     Dates: start: 20171206, end: 20181102
  6. DIAZEPAM. [Concomitant]
     Active Substance: DIAZEPAM
     Dates: start: 20190704, end: 20190707
  7. FUROSEMIDE. [Concomitant]
     Active Substance: FUROSEMIDE
     Dates: start: 20190906, end: 20190906
  8. LATANOPROST. [Concomitant]
     Active Substance: LATANOPROST
     Dates: start: 20181218, end: 20181218
  9. TACROLIMUS. [Suspect]
     Active Substance: TACROLIMUS
     Indication: TRANSPLANT
     Dosage: ?          OTHER FREQUENCY:1MG QAM, 2MG QPM;?
     Route: 048
     Dates: start: 20140214
  10. CARVEDILOL. [Concomitant]
     Active Substance: CARVEDILOL
     Dates: start: 20180602
  11. BIDIL [Concomitant]
     Active Substance: HYDRALAZINE HYDROCHLORIDE\ISOSORBIDE DINITRATE
     Dates: start: 20190913
  12. NORVASC [Concomitant]
     Active Substance: AMLODIPINE BESYLATE
     Dates: start: 20170824
  13. LOSARTAN. [Concomitant]
     Active Substance: LOSARTAN
     Dates: start: 20180601
  14. OMEPRAZOLE. [Concomitant]
     Active Substance: OMEPRAZOLE
     Dates: start: 20170928
  15. PREDNISONE. [Concomitant]
     Active Substance: PREDNISONE
     Dates: start: 20171206
  16. METOPROLOL TART [Concomitant]
     Active Substance: METOPROLOL TARTRATE
     Dates: start: 20180316, end: 20180316
  17. TADALAFIL. [Concomitant]
     Active Substance: TADALAFIL
     Dates: start: 20190225, end: 20190614

REACTIONS (2)
  - Bronchitis [None]
  - Dyspnoea [None]

NARRATIVE: CASE EVENT DATE: 20190912
